FAERS Safety Report 7612763-2 (Version None)
Quarter: 2011Q3

REPORT INFORMATION
  Report Type: 
  Country: None (occurrence: None)
  Receive Date: 20110708
  Receipt Date: 20110701
  Transmission Date: 20111222
  Serious: Yes (Hospitalization)
  Sender: FDA-Public Use
  Company Number: 2011SP028362

PATIENT
  Age: 49 Year
  Sex: Male

DRUGS (6)
  1. GOODMIN [Concomitant]
  2. DOGMATYL [Concomitant]
  3. TRIAZOLAM [Concomitant]
  4. DESYREL [Concomitant]
  5. REMERON [Suspect]
     Indication: DEPRESSION
     Dosage: 15 MG, QD, PO
     Route: 048
     Dates: start: 20110524, end: 20110530
  6. JZOLOFT (SERTRALINE HYDROCHLORIDE) [Concomitant]

REACTIONS (2)
  - DEPRESSION [None]
  - CONDITION AGGRAVATED [None]
